FAERS Safety Report 20455470 (Version 5)
Quarter: 2022Q2

REPORT INFORMATION
  Report Type: Report from Study
  Country: US (occurrence: US)
  Receive Date: 20220210
  Receipt Date: 20220414
  Transmission Date: 20220720
  Serious: Yes (Hospitalization, Other)
  Sender: FDA-Public Use
  Company Number: US-KYOWAKIRIN-2022BKK001430

PATIENT

DRUGS (2)
  1. CRYSVITA [Suspect]
     Active Substance: BUROSUMAB-TWZA
     Indication: Hereditary hypophosphataemic rickets
     Dosage: 60 MG, EVERY 4 WEEKS
     Route: 058
     Dates: start: 20200523, end: 20220122
  2. CRYSVITA [Suspect]
     Active Substance: BUROSUMAB-TWZA
     Dosage: 60 MG, EVERY 4 WEEKS
     Route: 058
     Dates: start: 2022

REACTIONS (4)
  - Urinary tract infection [Not Recovered/Not Resolved]
  - Hallucination [Unknown]
  - Hospitalisation [Not Recovered/Not Resolved]
  - Weight decreased [Unknown]

NARRATIVE: CASE EVENT DATE: 20220101
